FAERS Safety Report 5607108-3 (Version None)
Quarter: 2008Q1

REPORT INFORMATION
  Report Type: 
  Country: None (occurrence: None)
  Receive Date: 20080129
  Receipt Date: 20080117
  Transmission Date: 20080703
  Serious: Yes (Other)
  Sender: FDA-Public Use
  Company Number: US-PFIZER INC-2008006459

PATIENT
  Sex: Female
  Weight: 81.6 kg

DRUGS (12)
  1. NEURONTIN [Suspect]
     Indication: CONVULSION PROPHYLAXIS
     Dates: start: 19950101, end: 20030101
  2. LYRICA [Suspect]
     Indication: FIBROMYALGIA
  3. TRAMADOL HCL [Suspect]
     Indication: PAIN
  4. THYROID TAB [Concomitant]
  5. GLIPIZIDE [Concomitant]
  6. METFORMIN HYDROCHLORIDE [Concomitant]
  7. TOPAMAX [Concomitant]
  8. GABITRIL [Concomitant]
  9. PROVIGIL [Concomitant]
  10. MOBIC [Concomitant]
  11. ULTRAM [Concomitant]
  12. VITAMINS [Concomitant]

REACTIONS (3)
  - DIABETES MELLITUS [None]
  - HALLUCINATION [None]
  - WEIGHT INCREASED [None]
